FAERS Safety Report 8312587 (Version 4)
Quarter: 2012Q4

REPORT INFORMATION
  Report Type: Report from Study
  Country: US (occurrence: US)
  Receive Date: 20111227
  Receipt Date: 20120928
  Transmission Date: 20130627
  Serious: Yes (Other)
  Sender: FDA-Public Use
  Company Number: US-PFIZER INC-2011311589

PATIENT
  Sex: Male

DRUGS (3)
  1. LIPITOR [Suspect]
     Dosage: UNK
     Dates: start: 20120312, end: 20120702
  2. LYRICA [Suspect]
     Dosage: UNK
     Dates: start: 20120312, end: 20120702
  3. VIAGRA [Suspect]
     Indication: ERECTILE DYSFUNCTION
     Dosage: UNK

REACTIONS (4)
  - Convulsion [Unknown]
  - Vascular graft [Unknown]
  - Hernia repair [Unknown]
  - Limb operation [Unknown]
